FAERS Safety Report 7071290-4 (Version None)
Quarter: 2010Q4

REPORT INFORMATION
  Report Type: 
  Country: None (occurrence: None)
  Receive Date: 20101029
  Receipt Date: 20100721
  Transmission Date: 20110411
  Serious: No
  Sender: FDA-Public Use
  Company Number: A0869511A

PATIENT
  Age: 49 Year
  Sex: Female

DRUGS (6)
  1. FLOVENT [Suspect]
     Indication: ASTHMA
     Dosage: 1PUFF TWICE PER DAY
     Route: 055
     Dates: start: 20100625
  2. DIOVAN [Concomitant]
  3. LEXAPRO [Concomitant]
  4. KLONOPIN [Concomitant]
  5. NASONEX [Concomitant]
  6. AMBIEN [Concomitant]

REACTIONS (1)
  - DYSPNOEA [None]
